FAERS Safety Report 21990893 (Version 1)
Quarter: 2023Q1

REPORT INFORMATION
  Report Type: Report from Study
  Country: DE (occurrence: DE)
  Receive Date: 20230214
  Receipt Date: 20230214
  Transmission Date: 20230417
  Serious: Yes (Life-Threatening)
  Sender: FDA-Public Use
  Company Number: DE-JAZZ-2023-DE-002713

PATIENT
  Age: 57 Year
  Sex: Female

DRUGS (1)
  1. CYTARABINE\DAUNORUBICIN [Suspect]
     Active Substance: CYTARABINE\DAUNORUBICIN
     Indication: Acute myeloid leukaemia
     Dosage: 272 MILLIGRAM, QD (DAUNORUBICIN 44 MG/M2, CYTARABINE 100 MG/M2) AT DAY 1,3,5
     Route: 042
     Dates: start: 20211014, end: 20211016

REACTIONS (2)
  - Transaminases increased [Recovered/Resolved]
  - Septic shock [Recovered/Resolved]

NARRATIVE: CASE EVENT DATE: 20211017
